FAERS Safety Report 11293312 (Version 1)
Quarter: 2015Q3

REPORT INFORMATION
  Report Type: Report from Study
  Country: US (occurrence: US)
  Receive Date: 20150722
  Receipt Date: 20150722
  Transmission Date: 20151125
  Serious: Yes (Hospitalization)
  Sender: FDA-Public Use
  Company Number: US-GILEAD-2015-0163051

PATIENT
  Age: 78 Year
  Sex: Male

DRUGS (1)
  1. RANOLAZINE [Suspect]
     Active Substance: RANOLAZINE
     Indication: CHEST PAIN
     Route: 048

REACTIONS (4)
  - Constipation [Unknown]
  - Breast tenderness [Not Recovered/Not Resolved]
  - Breast pain [Unknown]
  - Adverse drug reaction [Unknown]
